FAERS Safety Report 13966977 (Version 3)
Quarter: 2017Q4

REPORT INFORMATION
  Report Type: Report from Study
  Country: US (occurrence: US)
  Receive Date: 20170914
  Receipt Date: 20171026
  Transmission Date: 20180320
  Serious: Yes (Other)
  Sender: FDA-Public Use
  Company Number: US-AMGEN-USASP2017138422

PATIENT
  Age: 43 Year
  Sex: Female

DRUGS (3)
  1. ENBREL [Suspect]
     Active Substance: ETANERCEPT
     Dosage: 50 MG, QWK
     Route: 058
     Dates: start: 2011
  2. ENBREL [Suspect]
     Active Substance: ETANERCEPT
     Dosage: 25 MG, 2 TIMES/WK
     Route: 065
  3. ENBREL [Suspect]
     Active Substance: ETANERCEPT
     Indication: RHEUMATOID ARTHRITIS
     Dosage: 25 MG, 2 TIMES/WK
     Route: 058
     Dates: start: 2006, end: 2011

REACTIONS (9)
  - Muscular weakness [Recovered/Resolved]
  - Sleep disorder due to a general medical condition [Unknown]
  - Sinusitis [Unknown]
  - Breakthrough pain [Unknown]
  - General physical health deterioration [Unknown]
  - Coeliac disease [Unknown]
  - Fatigue [Recovered/Resolved]
  - Rheumatoid arthritis [Unknown]
  - Malaise [Unknown]

NARRATIVE: CASE EVENT DATE: 201709
